FAERS Safety Report 16761473 (Version 1)
Quarter: 2019Q3

REPORT INFORMATION
  Report Type: Spontaneous
  Country: SE (occurrence: SE)
  Receive Date: 20190830
  Receipt Date: 20190830
  Transmission Date: 20191005
  Serious: Yes (Hospitalization)
  Sender: FDA-Public Use
  Company Number: SE-PURDUE-GBR-2019-0069647

PATIENT
  Age: 76 Year
  Sex: Male

DRUGS (3)
  1. OXYCODONE HYDROCHLORIDE. [Suspect]
     Active Substance: OXYCODONE HYDROCHLORIDE
     Indication: ABDOMINAL PAIN
     Dosage: 3 MG, UNK
     Route: 065
     Dates: start: 20190615, end: 20190615
  2. BISOPROLOL [Concomitant]
     Active Substance: BISOPROLOL
  3. SALURES [Concomitant]
     Active Substance: BENDROFLUMETHIAZIDE
     Dosage: UNK
     Dates: end: 201906

REACTIONS (1)
  - Bradycardia [Recovering/Resolving]

NARRATIVE: CASE EVENT DATE: 20190615
